FAERS Safety Report 4401355-4 (Version None)
Quarter: 2004Q3

REPORT INFORMATION
  Report Type: 
  Country: None (occurrence: None)
  Receive Date: 20040907
  Receipt Date: 20040322
  Transmission Date: 20050211
  Serious: No
  Sender: FDA-Public Use
  Company Number: US-BRISTOL-MYERS SQUIBB COMPANY-12539771

PATIENT
  Age: 83 Year
  Sex: Female
  Weight: 67 kg

DRUGS (2)
  1. COUMADIN [Suspect]
     Indication: THROMBOSIS
     Dosage: DOSAGE: 5MG ALTERNATING WITH 2.5MG (1/2 A TABLET) DAILY EVERY OTHER DAY.
     Route: 048
     Dates: start: 20031229
  2. CENTRUM [Concomitant]

REACTIONS (1)
  - JOINT SWELLING [None]
